FAERS Safety Report 17271877 (Version 1)
Quarter: 2020Q1

REPORT INFORMATION
  Report Type: Spontaneous
  Country: US (occurrence: US)
  Receive Date: 20200115
  Receipt Date: 20200115
  Transmission Date: 20200409
  Serious: Yes (Hospitalization, Other)
  Sender: FDA-Public Use
  Company Number: US-SA-2020SA007780

PATIENT
  Age: 84 Year
  Sex: Male

DRUGS (3)
  1. LANTUS [Suspect]
     Active Substance: INSULIN GLARGINE
     Indication: DIABETES MELLITUS
     Dosage: 16-20 UNITS OF LANTUS WITH DINNER
     Route: 065
  2. LANTUS [Suspect]
     Active Substance: INSULIN GLARGINE
     Dosage: 17 IU, QD
     Route: 065
  3. HUMALOG [Concomitant]
     Active Substance: INSULIN LISPRO
     Dosage: 6-8 UNITS WITH EACH MEAL
     Route: 065

REACTIONS (4)
  - Near death experience [Unknown]
  - Blood glucose decreased [Recovered/Resolved]
  - Bradycardia [Unknown]
  - Glycosylated haemoglobin decreased [Recovered/Resolved]
